FAERS Safety Report 4483974-2 (Version None)
Quarter: 2004Q4

REPORT INFORMATION
  Report Type: 
  Country: None (occurrence: None)
  Receive Date: 20041025
  Receipt Date: 20040721
  Transmission Date: 20050328
  Serious: Yes (Hospitalization)
  Sender: FDA-Public Use
  Company Number: AU-ROCHE-375572

PATIENT
  Age: 50 Year
  Sex: Male

DRUGS (6)
  1. INTERFERON ALFA-2A [Suspect]
     Route: 058
     Dates: start: 20040713
  2. INTERFERON ALFA-2A [Suspect]
     Route: 058
     Dates: start: 20040727
  3. BLINDED BEVACIZUMAB [Suspect]
     Route: 042
     Dates: start: 20040713
  4. ACETAMINOPHEN [Concomitant]
     Dates: start: 20040629
  5. MS CONTIN [Concomitant]
     Dosage: 20MG GIVEN FROM 29 JUNE TO 21 JULY 2004 40MG GIVEN FROM 22 JULY TO 23 JULY 2004
     Dates: start: 20040629, end: 20040723
  6. MORPHINE [Concomitant]
     Dates: start: 20040629, end: 20040723

REACTIONS (16)
  - ABDOMINAL PAIN [None]
  - ARTHRALGIA [None]
  - BLOOD ALKALINE PHOSPHATASE INCREASED [None]
  - C-REACTIVE PROTEIN INCREASED [None]
  - CHILLS [None]
  - DEHYDRATION [None]
  - EPISTAXIS [None]
  - GAMMA-GLUTAMYLTRANSFERASE INCREASED [None]
  - HAEMOPTYSIS [None]
  - HYPERHIDROSIS [None]
  - MALAISE [None]
  - MICROCYTIC ANAEMIA [None]
  - MYALGIA [None]
  - NAUSEA [None]
  - PYREXIA [None]
  - VOMITING [None]
